FAERS Safety Report 9928180 (Version 1)
Quarter: 2014Q1

REPORT INFORMATION
  Report Type: Report from Study
  Country: US (occurrence: US)
  Receive Date: 20140227
  Receipt Date: 20140227
  Transmission Date: 20141002
  Serious: Yes (Other)
  Sender: FDA-Public Use
  Company Number: US-ROCHE-1328183

PATIENT
  Age: 79 Year
  Sex: Female

DRUGS (14)
  1. LUCENTIS [Suspect]
     Indication: DIABETIC EYE DISEASE
     Route: 050
  2. LUCENTIS [Suspect]
     Indication: DIABETIC RETINOPATHY
     Route: 050
  3. LUCENTIS [Suspect]
     Indication: DIABETIC RETINAL OEDEMA
  4. AVASTIN [Suspect]
     Indication: PRODUCT USED FOR UNKNOWN INDICATION
     Route: 065
     Dates: start: 20090820, end: 20090824
  5. LIDOCAINE [Concomitant]
     Route: 065
  6. LIDOCAINE [Concomitant]
     Route: 057
  7. ALCAINE [Concomitant]
  8. BETADINE [Concomitant]
     Dosage: TO CONJUNCTIVA
     Route: 065
  9. BETADINE [Concomitant]
     Route: 065
  10. SYSTANE [Concomitant]
  11. MYDFRIN [Concomitant]
     Route: 065
  12. MYDRIACYL [Concomitant]
     Route: 065
  13. KENALOG (UNITED STATES) [Concomitant]
     Dosage: OD
     Route: 050
  14. E-MYCIN [Concomitant]

REACTIONS (21)
  - Cystoid macular oedema [Unknown]
  - Macular oedema [Unknown]
  - Retinal exudates [Unknown]
  - Photopsia [Unknown]
  - Cataract [Unknown]
  - Eye swelling [Unknown]
  - Dry eye [Unknown]
  - Aneurysm [Unknown]
  - Retinal scar [Unknown]
  - Retinal fibrosis [Unknown]
  - Narrow anterior chamber angle [Unknown]
  - Retinal haemorrhage [Unknown]
  - Off label use [Unknown]
  - Ophthalmological examination abnormal [Unknown]
  - Retinal disorder [Unknown]
  - Diabetes mellitus inadequate control [Unknown]
  - Flat anterior chamber of eye [Unknown]
  - Diabetic retinopathy [Unknown]
  - Retinal scar [Unknown]
  - Blood pressure inadequately controlled [Unknown]
  - Retinal scar [Unknown]
